FAERS Safety Report 4789298-8 (Version None)
Quarter: 2005Q3

REPORT INFORMATION
  Report Type: 
  Country: None (occurrence: None)
  Receive Date: 20050929
  Receipt Date: 20050817
  Transmission Date: 20060218
  Serious: No
  Sender: FDA-Public Use
  Company Number: 05P-163-0308649-00

PATIENT
  Age: 57 Year
  Sex: Female
  Weight: 70.3075 kg

DRUGS (12)
  1. HUMIRA [Suspect]
     Indication: PSORIATIC ARTHROPATHY
     Dosage: 40 MG, 1 IN 1 WK, SUBCUTANEOUS
     Route: 058
     Dates: start: 20040101
  2. CICLOSPORIN [Concomitant]
  3. PREDNISONE TAB [Concomitant]
  4. FENTANYL [Concomitant]
  5. ALENDRONATE SODIUM [Concomitant]
  6. COSOPT [Concomitant]
  7. ATORVASTATIN [Concomitant]
  8. ESOMEPRAZOLE [Concomitant]
  9. TOPIRAMATE [Concomitant]
  10. GABAPENTIN [Concomitant]
  11. HYDROCHLOROTHIAZIDE [Concomitant]
  12. LISINOPRIL [Concomitant]

REACTIONS (1)
  - INJECTION SITE IRRITATION [None]
